FAERS Safety Report 21543180 (Version 2)
Quarter: 2023Q1

REPORT INFORMATION
  Report Type: Spontaneous
  Country: US (occurrence: US)
  Receive Date: 20221102
  Receipt Date: 20230224
  Transmission Date: 20230418
  Serious: No
  Sender: FDA-Public Use
  Company Number: US-SA-SAC20221028001080

PATIENT
  Age: 10 Year
  Sex: Male

DRUGS (2)
  1. DUPIXENT [Suspect]
     Active Substance: DUPILUMAB
     Indication: Dermatitis atopic
     Dosage: 200 MG, QOW
     Route: 058
     Dates: start: 20221026
  2. AUVI-Q [Concomitant]
     Active Substance: EPINEPHRINE

REACTIONS (3)
  - Sleep disorder [Recovered/Resolved]
  - Rash [Recovered/Resolved]
  - Discomfort [Recovered/Resolved]
